FAERS Safety Report 9434838 (Version 3)
Quarter: 2013Q4

REPORT INFORMATION
  Report Type: Spontaneous
  Country: US (occurrence: US)
  Receive Date: 20130801
  Receipt Date: 20131015
  Transmission Date: 20140711
  Serious: No
  Sender: FDA-Public Use
  Company Number: US-009507513-1307USA015191

PATIENT
  Sex: Male
  Weight: 86.17 kg

DRUGS (3)
  1. MIRALAX [Suspect]
     Indication: CONSTIPATION
     Dosage: 34 G, QD
     Route: 048
     Dates: start: 20130301
  2. MIRALAX [Suspect]
     Indication: MEDICAL OBSERVATION
     Dosage: 17 G, QD
     Route: 048
  3. MIRALAX [Suspect]
     Dosage: 8.5 G, QD
     Route: 048

REACTIONS (3)
  - Prescribed overdose [Unknown]
  - Incorrect drug administration duration [Unknown]
  - Underdose [Unknown]
